FAERS Safety Report 17006974 (Version 1)
Quarter: 2019Q4

REPORT INFORMATION
  Report Type: Spontaneous
  Country: DE (occurrence: DE)
  Receive Date: 20191107
  Receipt Date: 20191107
  Transmission Date: 20200122
  Serious: Yes (Other)
  Sender: FDA-Public Use
  Company Number: DE-ASTRAZENECA-2019SF56166

PATIENT
  Age: 23251 Day
  Sex: Female

DRUGS (1)
  1. LYNPARZA [Suspect]
     Active Substance: OLAPARIB
     Indication: OVARIAN CANCER
     Route: 048
     Dates: start: 20190120, end: 20191018

REACTIONS (2)
  - Off label use [Unknown]
  - Ovarian cancer recurrent [Unknown]

NARRATIVE: CASE EVENT DATE: 20190120
